FAERS Safety Report 8225345-9 (Version None)
Quarter: 2012Q1

REPORT INFORMATION
  Report Type: 
  Country: None (occurrence: None)
  Receive Date: 20120321
  Receipt Date: 20120315
  Transmission Date: 20120608
  Serious: Yes (Hospitalization)
  Sender: FDA-Public Use
  Company Number: JP-GLAXOSMITHKLINE-B0783742A

PATIENT
  Sex: Female

DRUGS (3)
  1. LAMICTAL [Suspect]
     Indication: DEPRESSION
     Dosage: 1IUAX PER DAY
     Route: 048
     Dates: start: 20111220, end: 20120105
  2. LEVOTHYROXINE SODIUM [Concomitant]
     Indication: AUTOIMMUNE THYROIDITIS
     Dosage: 2IUAX PER DAY
     Route: 048
     Dates: start: 20110101, end: 20120112
  3. LITHIUM CARBONATE [Concomitant]
     Indication: BIPOLAR DISORDER
     Route: 048
     Dates: end: 20120201

REACTIONS (13)
  - PURPURA [None]
  - WHITE BLOOD CELL COUNT INCREASED [None]
  - DRUG ERUPTION [None]
  - LIP EROSION [None]
  - BLOOD THYROID STIMULATING HORMONE INCREASED [None]
  - STEVENS-JOHNSON SYNDROME [None]
  - ORAL MUCOSA EROSION [None]
  - BLOOD LACTATE DEHYDROGENASE INCREASED [None]
  - GENERALISED ERYTHEMA [None]
  - DERMATITIS [None]
  - INSOMNIA [None]
  - ASPARTATE AMINOTRANSFERASE INCREASED [None]
  - ALANINE AMINOTRANSFERASE INCREASED [None]
